FAERS Safety Report 6609942-X (Version None)
Quarter: 2010Q1

REPORT INFORMATION
  Report Type: 
  Country: None (occurrence: None)
  Receive Date: 20100302
  Receipt Date: 20100201
  Transmission Date: 20100710
  Serious: Yes (Death, Other)
  Sender: FDA-Public Use
  Company Number: PHHY2010CN08761

PATIENT
  Age: 49 Year
  Sex: Female

DRUGS (6)
  1. CYCLOSPORINE [Suspect]
     Indication: SYSTEMIC LUPUS ERYTHEMATOSUS
     Dosage: 150 MG DAILY
  2. METHYLPREDNISOLONE [Concomitant]
     Dosage: 32 MG DAILY
  3. METHYLPREDNISOLONE [Concomitant]
     Dosage: 24 MG DAILY
  4. METHYLPREDNISOLONE [Concomitant]
     Dosage: 500 MG DAILY
  5. METHYLPREDNISOLONE [Concomitant]
     Dosage: 80 MG DAILY
  6. POLYGAM S/D [Concomitant]
     Dosage: 20 MG DAILY

REACTIONS (3)
  - DRUG INEFFECTIVE [None]
  - LUNG INFECTION [None]
  - RESPIRATORY FAILURE [None]
